FAERS Safety Report 11811203 (Version 2)
Quarter: 2015Q4

REPORT INFORMATION
  Report Type: Report from Study
  Country: US (occurrence: US)
  Receive Date: 20151208
  Receipt Date: 20151213
  Transmission Date: 20160305
  Serious: No
  Sender: FDA-Public Use
  Company Number: US-AMGEN-USASL2015129518

PATIENT
  Age: 37 Year
  Sex: Female

DRUGS (1)
  1. ENBREL [Suspect]
     Active Substance: ETANERCEPT
     Indication: PSORIATIC ARTHROPATHY
     Dosage: 50 MG, QWK
     Route: 065
     Dates: start: 20150517

REACTIONS (7)
  - Injection site haemorrhage [Unknown]
  - Drug dose omission [Unknown]
  - Pain [Unknown]
  - Hypertension [Unknown]
  - Ear infection [Unknown]
  - Fatigue [Unknown]
  - Joint swelling [Unknown]

NARRATIVE: CASE EVENT DATE: 2015
